FAERS Safety Report 9887418 (Version 2)
Quarter: 2014Q2

REPORT INFORMATION
  Report Type: Spontaneous
  Country: DE (occurrence: DE)
  Receive Date: 20140211
  Receipt Date: 20140606
  Transmission Date: 20141212
  Serious: Yes (Hospitalization, Other)
  Sender: FDA-Public Use
  Company Number: DE-JNJFOC-20140204775

PATIENT
  Age: 70 Year
  Sex: Male
  Weight: 74.83 kg

DRUGS (6)
  1. XARELTO [Suspect]
     Indication: ATRIAL FIBRILLATION
     Route: 048
     Dates: end: 20140127
  2. XARELTO [Suspect]
     Indication: CEREBROVASCULAR ACCIDENT PROPHYLAXIS
     Route: 048
     Dates: end: 20140127
  3. ASS [Concomitant]
     Indication: CORONARY ARTERY DISEASE
     Route: 065
     Dates: start: 20140125
  4. HEPARIN [Concomitant]
     Dosage: DOSE: 4000-5000 IU
     Route: 065
     Dates: start: 20140110, end: 20140121
  5. PANTOPRAZOLE [Concomitant]
     Route: 065
  6. RANITIDIN [Concomitant]
     Route: 065

REACTIONS (2)
  - Pulmonary haemorrhage [Recovered/Resolved]
  - Respiratory failure [Recovered/Resolved]
